FAERS Safety Report 24180516 (Version 1)
Quarter: 2024Q3

REPORT INFORMATION
  Report Type: Report from Study
  Country: CO (occurrence: CO)
  Receive Date: 20240806
  Receipt Date: 20240806
  Transmission Date: 20241016
  Serious: Yes (Hospitalization, Other)
  Sender: ASTELLAS
  Company Number: CO-ASTELLAS-2024US021819

PATIENT
  Age: 65 Year
  Sex: Male

DRUGS (1)
  1. TACROLIMUS [Suspect]
     Active Substance: TACROLIMUS
     Indication: Renal transplant
     Dosage: 7.5 MG, ONCE DAILY (PROGRAF XL 0.5 MG (1 CAPSULE), 1 MG (2 CAPSULES), 5 MG (1 CAPSULE))
     Route: 048
     Dates: start: 20100227

REACTIONS (3)
  - Angina unstable [Unknown]
  - Diarrhoea [Unknown]
  - Pyrexia [Unknown]
